FAERS Safety Report 5305981-X (Version None)
Quarter: 2007Q2

REPORT INFORMATION
  Report Type: 
  Country: None (occurrence: None)
  Receive Date: 20070420
  Receipt Date: 20070420
  Transmission Date: 20071010
  Serious: Yes (Death, Hospitalization)
  Sender: FDA-Public Use
  Company Number: None

PATIENT
  Sex: Male
  Weight: 72.9 kg

DRUGS (6)
  1. CYCLOPHOSPHAMIDE [Suspect]
     Dosage: 2244 MG
     Dates: end: 20070321
  2. DAUNORUBICIN HCL [Suspect]
     Dosage: 450 MG
     Dates: end: 20070321
  3. DEXAMETHASONE 0.5MG TAB [Suspect]
     Dosage: 140 MG
     Dates: end: 20070327
  4. G-CSF (FILGRASTIM, AMGEN) [Suspect]
     Dosage: 7960 MCG
     Dates: end: 20070405
  5. ELSPAR [Suspect]
     Dosage: 11440 MG
     Dates: end: 20070328
  6. VINCRISTINE SULFATE [Suspect]
     Dosage: 4 MG
     Dates: end: 20070328

REACTIONS (1)
  - SYSTEMIC MYCOSIS [None]
